FAERS Safety Report 4736515-6 (Version None)
Quarter: 2005Q3

REPORT INFORMATION
  Report Type: 
  Country: None (occurrence: None)
  Receive Date: 20050804
  Receipt Date: 20050131
  Transmission Date: 20060218
  Serious: Yes (Other)
  Sender: FDA-Public Use
  Company Number: TOR 2005 0003

PATIENT
  Age: 73 Year
  Sex: Female

DRUGS (6)
  1. FARESTON [Suspect]
     Indication: BREAST CANCER
     Dosage: ORAL
     Route: 048
     Dates: start: 19990801, end: 20020824
  2. PROCRIT [Concomitant]
  3. DIABETIA [Concomitant]
  4. CARDURA [Concomitant]
  5. SYNTHROID [Concomitant]
  6. LORA TAB [Concomitant]

REACTIONS (1)
  - ENDOMETRIAL CANCER [None]
